FAERS Safety Report 9303694 (Version 1)
Quarter: 2013Q2

REPORT INFORMATION
  Report Type: Spontaneous
  Country: US (occurrence: None)
  Receive Date: 20130521
  Receipt Date: 20130521
  Transmission Date: 20140414
  Serious: Yes (Hospitalization)
  Sender: FDA-Public Use
  Company Number: None

PATIENT
  Age: 59 Year
  Sex: Male

DRUGS (2)
  1. CARBOPLATIN [Suspect]
     Route: 042
     Dates: start: 20130316, end: 20130501
  2. PACLITAXEL [Suspect]
     Route: 042
     Dates: start: 20130313, end: 20130501

REACTIONS (2)
  - Nausea [None]
  - Vomiting [None]
